FAERS Safety Report 5565786-1 (Version None)
Quarter: 2007Q4

REPORT INFORMATION
  Report Type: 
  Country: None (occurrence: None)
  Receive Date: 20071213
  Receipt Date: 20071207
  Transmission Date: 20080405
  Serious: Yes (Death, Hospitalization)
  Sender: FDA-Public Use
  Company Number: 163-21880-07080421

PATIENT
  Age: 73 Year
  Sex: Male
  Weight: 68 kg

DRUGS (2)
  1. REVLIMID [Suspect]
     Indication: ACUTE MYELOID LEUKAEMIA
     Dosage: 50 MG, 2 IN 1 D, ORAL
     Route: 048
     Dates: start: 20070731, end: 20070805
  2. MAGNESIUM (MAGNESIUM) [Concomitant]

REACTIONS (8)
  - ATRIAL FIBRILLATION [None]
  - CARDIO-RESPIRATORY ARREST [None]
  - CARDIOMEGALY [None]
  - PLEURAL EFFUSION [None]
  - PNEUMONIA [None]
  - PULMONARY OEDEMA [None]
  - RESPIRATORY FAILURE [None]
  - VENTRICULAR FIBRILLATION [None]
